FAERS Safety Report 23703466 (Version 1)
Quarter: 2024Q2

REPORT INFORMATION
  Report Type: Spontaneous
  Country: US (occurrence: None)
  Receive Date: 20240403
  Receipt Date: 20240403
  Transmission Date: 20240716
  Serious: Yes (Disabling)
  Sender: FDA-Public Use
  Company Number: None

PATIENT
  Age: 32 Year
  Sex: Male
  Weight: 56.25 kg

DRUGS (9)
  1. LOVENOX [Suspect]
     Active Substance: ENOXAPARIN SODIUM
     Indication: Thrombosis prophylaxis
     Dosage: AT BEDTIME
     Route: 058
     Dates: start: 20240204, end: 20240207
  2. BACLOFEN [Concomitant]
     Active Substance: BACLOFEN
  3. MELATONIN [Concomitant]
  4. VALIUM [Concomitant]
  5. IPRATROPIUM [Concomitant]
  6. BENADRYL [Concomitant]
     Active Substance: DIPHENHYDRAMINE HYDROCHLORIDE
  7. OSMOLITE [Concomitant]
  8. CANNABIS SATIVA SUBSP. INDICA TOP [Concomitant]
     Active Substance: CANNABIS SATIVA SUBSP. INDICA TOP
  9. ALEVE [Concomitant]
     Active Substance: NAPROXEN SODIUM

REACTIONS (1)
  - Phantom limb syndrome [None]

NARRATIVE: CASE EVENT DATE: 20240207
